FAERS Safety Report 10732660 (Version 3)
Quarter: 2016Q4

REPORT INFORMATION
  Report Type: Report from Study
  Country: KR (occurrence: KR)
  Receive Date: 20150123
  Receipt Date: 20161012
  Transmission Date: 20170206
  Serious: Yes (Hospitalization)
  Sender: FDA-Public Use
  Company Number: KR-OTSUKA-JP-2015-10230

PATIENT
  Age: 74 Year
  Sex: Male

DRUGS (9)
  1. ULTRACET [Concomitant]
     Active Substance: ACETAMINOPHEN\TRAMADOL HYDROCHLORIDE
     Indication: CEREBRAL INFARCTION
     Dosage: 2 DF, QD
     Route: 048
     Dates: start: 20140529, end: 20140701
  2. NEUROMED [Concomitant]
     Indication: CEREBRAL INFARCTION
     Dosage: 2 DF, QD
     Route: 048
     Dates: start: 20140611
  3. VALIUM [Concomitant]
     Active Substance: DIAZEPAM
     Indication: CEREBRAL INFARCTION
     Dosage: 2 DF, QD
     Route: 048
     Dates: start: 20090710
  4. NEUTOIN [Concomitant]
     Indication: CEREBRAL INFARCTION
     Dosage: 1 DF, QD
     Route: 048
     Dates: start: 20140702
  5. PLETAAL [Suspect]
     Active Substance: CILOSTAZOL
     Indication: CEREBRAL INFARCTION
     Dosage: 200 MG, UNK
     Route: 048
     Dates: start: 20140611
  6. STILNOX CR [Concomitant]
     Active Substance: ZOLPIDEM TARTRATE
     Indication: CEREBRAL INFARCTION
     Dosage: 1 DF, QD
     Route: 048
     Dates: start: 20091024
  7. TRITTICO [Concomitant]
     Active Substance: TRAZODONE HYDROCHLORIDE
     Indication: CEREBRAL INFARCTION
     Dosage: 1 DF, QD
     Route: 048
     Dates: start: 20100203
  8. EFFEXOR XR [Concomitant]
     Active Substance: VENLAFAXINE HYDROCHLORIDE
     Indication: CEREBRAL INFARCTION
     Dosage: 1 DF, QD
     Route: 048
     Dates: start: 20100401
  9. CILOSTAZOL. [Suspect]
     Active Substance: CILOSTAZOL
     Indication: CEREBRAL INFARCTION
     Dosage: 200 MG, QD
     Route: 048
     Dates: start: 20140611

REACTIONS (3)
  - Toxicity to various agents [Recovered/Resolved]
  - Anxiety disorder [Recovered/Resolved]
  - Headache [Recovered/Resolved]

NARRATIVE: CASE EVENT DATE: 20140710
